FAERS Safety Report 14281338 (Version 1)
Quarter: 2017Q4

REPORT INFORMATION
  Report Type: Other
  Country: CA (occurrence: CA)
  Receive Date: 20171213
  Receipt Date: 20171213
  Transmission Date: 20180321
  Serious: Yes (Other)
  Sender: FDA-Public Use
  Company Number: CA-APOTEX-2017AP016469

PATIENT
  Age: 67 Year
  Sex: Female

DRUGS (5)
  1. APO-CAPECITABINE [Suspect]
     Active Substance: CAPECITABINE
     Indication: ADENOCARCINOMA OF COLON
     Dosage: 825 MG/M2, BID
     Route: 065
  2. OXALIPLANTIN INJECTION, SOLUTION FOR INJECTION, USP [Suspect]
     Active Substance: OXALIPLATIN
     Indication: COLORECTAL CANCER METASTATIC
  3. IRBESARTAN. [Concomitant]
     Active Substance: IRBESARTAN
     Indication: COLORECTAL CANCER METASTATIC
     Dosage: 150 MG, BID
     Route: 065
  4. OXALIPLANTIN INJECTION, SOLUTION FOR INJECTION, USP [Suspect]
     Active Substance: OXALIPLATIN
     Indication: ADENOCARCINOMA OF COLON
     Dosage: UNK, CYCLICAL
     Route: 065
  5. APO-CAPECITABINE [Suspect]
     Active Substance: CAPECITABINE
     Indication: COLORECTAL CANCER METASTATIC

REACTIONS (3)
  - Neutropenia [Not Recovered/Not Resolved]
  - Colorectal cancer recurrent [Unknown]
  - Neuropathy peripheral [Not Recovered/Not Resolved]
